FAERS Safety Report 9455575 (Version 1)
Quarter: 2013Q3

REPORT INFORMATION
  Report Type: Spontaneous
  Country: NL (occurrence: None)
  Receive Date: 20130808
  Receipt Date: 20130808
  Transmission Date: 20140515
  Serious: Yes (Death, Other)
  Sender: FDA-Public Use
  Company Number: 2013070471

PATIENT
  Age: 33 Year
  Sex: Male

DRUGS (2)
  1. FENTANYL [Suspect]
  2. MORPHINE [Suspect]

REACTIONS (7)
  - Cardiac hypertrophy [None]
  - Cardiomyopathy [None]
  - Dilatation ventricular [None]
  - Pulmonary oedema [None]
  - Hyperaemia [None]
  - Pyomyositis [None]
  - Toxicity to various agents [None]
